FAERS Safety Report 6542896-3 (Version None)
Quarter: 2010Q1

REPORT INFORMATION
  Report Type: 
  Country: None (occurrence: None)
  Receive Date: 20100120
  Receipt Date: 20100108
  Transmission Date: 20100710
  Serious: Yes (Hospitalization)
  Sender: FDA-Public Use
  Company Number: FR-BAYER-201011251GPV

PATIENT
  Age: 67 Year
  Sex: Female

DRUGS (3)
  1. SORAFENIB [Suspect]
     Indication: OVARIAN CANCER
     Dosage: TOTAL DAILY DOSE: 800 MG
     Route: 048
     Dates: start: 20091223, end: 20100104
  2. FORLAX [Concomitant]
     Indication: CONSTIPATION
     Dosage: BAG
     Route: 048
     Dates: start: 20090701
  3. ACETAMINOPHEN AND CODEINE PHOSPHATE [Concomitant]
     Indication: ABDOMINAL PAIN
     Route: 048
     Dates: start: 20090801

REACTIONS (1)
  - CEREBROVASCULAR ACCIDENT [None]
